FAERS Safety Report 14979317 (Version 1)
Quarter: 2018Q2

REPORT INFORMATION
  Report Type: Spontaneous
  Country: US (occurrence: US)
  Receive Date: 20180516
  Receipt Date: 20180516
  Transmission Date: 20180711
  Serious: Yes (Life-Threatening, Hospitalization, Other)
  Sender: FDA-Public Use
  Company Number: None

PATIENT
  Age: 59 Year
  Sex: Female
  Weight: 121.5 kg

DRUGS (13)
  1. CALCIUM [Concomitant]
     Active Substance: CALCIUM
  2. JOINT HEALTH SUPPLEMENT (COSTCO PRODUCT) [Concomitant]
  3. VITAMIN D3 [Concomitant]
     Active Substance: CHOLECALCIFEROL
  4. TRAMADOL. [Concomitant]
     Active Substance: TRAMADOL
  5. IBUPROPHEN [Concomitant]
     Active Substance: IBUPROFEN
  6. ESTRADIOL. [Concomitant]
     Active Substance: ESTRADIOL
  7. MULTI VITAMIN SENIOR FORMULA [Concomitant]
  8. ROBAXIN [Concomitant]
     Active Substance: METHOCARBAMOL
  9. FOLIC ACID. [Concomitant]
     Active Substance: FOLIC ACID
  10. ENBREL [Suspect]
     Active Substance: ETANERCEPT
     Indication: RHEUMATOID ARTHRITIS
     Dosage: ?          OTHER STRENGTH:MG/MI;QUANTITY:1 INJECTION(S);OTHER FREQUENCY:WEEKLY;OTHER ROUTE:INJECT 1ML UNDER SKIN ONCE PER WEEK?
     Dates: start: 20180406, end: 20180420
  11. MAGNESIUM [Concomitant]
     Active Substance: MAGNESIUM
  12. SYNTHETIC [Concomitant]
  13. VITAMIN E [Concomitant]
     Active Substance: .ALPHA.-TOCOPHEROL

REACTIONS (2)
  - Rash [None]
  - Subdural haematoma [None]

NARRATIVE: CASE EVENT DATE: 20180428
